FAERS Safety Report 15223425 (Version 3)
Quarter: 2018Q3

REPORT INFORMATION
  Report Type: Spontaneous
  Country: BY (occurrence: BY)
  Receive Date: 20180731
  Receipt Date: 20180904
  Transmission Date: 20181010
  Serious: Yes (Other)
  Sender: FDA-Public Use
  Company Number: BY-PFIZER INC-2018300870

PATIENT
  Age: 5 Year
  Sex: Male
  Weight: 19 kg

DRUGS (3)
  1. VORICONAZOL [Concomitant]
     Active Substance: VORICONAZOLE
  2. HEPARIN [Suspect]
     Active Substance: HEPARIN SODIUM
  3. LEVOFLOXACIN. [Concomitant]
     Active Substance: LEVOFLOXACIN

REACTIONS (1)
  - Aspergillus infection [Unknown]
